FAERS Safety Report 18592039 (Version 1)
Quarter: 2020Q4

REPORT INFORMATION
  Report Type: Spontaneous
  Country: US (occurrence: US)
  Receive Date: 20201208
  Receipt Date: 20201208
  Transmission Date: 20210114
  Serious: No
  Sender: FDA-Public Use
  Company Number: US-LYNE LABORATORIES INC.-2101753

PATIENT
  Age: 70 Year
  Sex: Female
  Weight: 94.5 kg

DRUGS (1)
  1. CHLORHEXIDINE GLUCONATE. [Suspect]
     Active Substance: CHLORHEXIDINE GLUCONATE
     Route: 048
     Dates: start: 20200428, end: 20200429

REACTIONS (1)
  - Glossitis [Recovered/Resolved]

NARRATIVE: CASE EVENT DATE: 20200429
